FAERS Safety Report 8603167-4 (Version None)
Quarter: 2012Q3

REPORT INFORMATION
  Report Type: 
  Country: None (occurrence: None)
  Receive Date: 20120817
  Receipt Date: 20120808
  Transmission Date: 20120928
  Serious: Yes (Other)
  Sender: FDA-Public Use
  Company Number: US-CELGENEUS-163-21880-12081256

PATIENT
  Sex: Male

DRUGS (10)
  1. LORTAB [Concomitant]
     Route: 065
  2. CRANBERRY [Concomitant]
     Route: 048
  3. ASCORBIC ACID [Concomitant]
     Route: 065
  4. LOVAZA [Concomitant]
     Route: 065
  5. VITAMIN B6 [Concomitant]
     Route: 065
  6. MULTI-VITAMINS [Concomitant]
     Route: 065
  7. REVLIMID [Suspect]
     Indication: MULTIPLE MYELOMA
     Dosage: 10 MILLIGRAM
     Route: 048
     Dates: start: 20120208
  8. PROCHLORPERAZINE [Concomitant]
     Route: 065
  9. L-CARNITINE [Concomitant]
     Route: 065
  10. RAMIPRIL [Concomitant]
     Route: 065

REACTIONS (1)
  - TOOTH DISORDER [None]
